FAERS Safety Report 6197779-8 (Version None)
Quarter: 2009Q2

REPORT INFORMATION
  Report Type: 
  Country: None (occurrence: None)
  Receive Date: 20090521
  Receipt Date: 20090512
  Transmission Date: 20091009
  Serious: Yes (Other)
  Sender: FDA-Public Use
  Company Number: US-PFIZER INC-2009215471

PATIENT
  Sex: Female

DRUGS (4)
  1. GEODON [Suspect]
  2. LAMICTAL [Concomitant]
  3. LORAZEPAM [Concomitant]
  4. TRAZODONE [Concomitant]

REACTIONS (1)
  - OBSESSIVE-COMPULSIVE DISORDER [None]
